FAERS Safety Report 8177633-2 (Version None)
Quarter: 2012Q1

REPORT INFORMATION
  Report Type: 
  Country: None (occurrence: None)
  Receive Date: 20120301
  Receipt Date: 20120222
  Transmission Date: 20120608
  Serious: Yes (Other)
  Sender: FDA-Public Use
  Company Number: PHHY2011US62875

PATIENT
  Sex: Female
  Weight: 102.49 kg

DRUGS (4)
  1. GILENYA [Suspect]
     Indication: MULTIPLE SCLEROSIS
     Dosage: 0.5 MG, QD
     Route: 048
     Dates: start: 20110613
  2. GILENYA [Suspect]
     Dosage: 0.5 MG, QOD
     Route: 048
     Dates: start: 20120215
  3. CORTICOSTEROIDS [Concomitant]
     Dosage: UNK UKN, UNK
  4. GILENYA [Suspect]
     Dosage: 0.5 MG, QD
     Route: 048
     Dates: start: 20120217

REACTIONS (15)
  - CHEST PAIN [None]
  - VISION BLURRED [None]
  - SINUSITIS [None]
  - MUSCULAR WEAKNESS [None]
  - EYELID PTOSIS [None]
  - DYSPNOEA [None]
  - HYPERSOMNIA [None]
  - FEELING ABNORMAL [None]
  - SINUS HEADACHE [None]
  - CONTUSION [None]
  - INCORRECT DOSE ADMINISTERED [None]
  - DYSARTHRIA [None]
  - ORTHOSTATIC HYPOTENSION [None]
  - DIZZINESS [None]
  - VISUAL IMPAIRMENT [None]
